FAERS Safety Report 10637853 (Version 2)
Quarter: 2015Q4

REPORT INFORMATION
  Report Type: Report from Study
  Country: VE (occurrence: VE)
  Receive Date: 20141208
  Receipt Date: 20151218
  Transmission Date: 20160304
  Serious: Yes (Hospitalization, Other)
  Sender: FDA-Public Use
  Company Number: VE-ABBVIE-14K-178-1316514-00

PATIENT
  Age: 55 Year
  Sex: Female
  Weight: 82 kg

DRUGS (6)
  1. EUTHYROX [Concomitant]
     Active Substance: LEVOTHYROXINE SODIUM
     Indication: THYROID DISORDER
     Route: 048
  2. LEVOTHYROXINE. [Concomitant]
     Active Substance: LEVOTHYROXINE
     Indication: HYPOTHYROIDISM
     Route: 048
     Dates: start: 2000
  3. PLAQUENIL [Concomitant]
     Active Substance: HYDROXYCHLOROQUINE SULFATE
     Indication: RHEUMATOID ARTHRITIS
     Route: 048
     Dates: start: 1990, end: 2013
  4. PREDNISONE. [Concomitant]
     Active Substance: PREDNISONE
     Indication: RHEUMATOID ARTHRITIS
     Route: 048
     Dates: start: 1990, end: 2013
  5. HUMIRA [Suspect]
     Active Substance: ADALIMUMAB
     Indication: RHEUMATOID ARTHRITIS
     Route: 058
     Dates: start: 200801, end: 201405
  6. METHOTREXATE [Concomitant]
     Active Substance: METHOTREXATE
     Indication: RHEUMATOID ARTHRITIS
     Dosage: 2 DAYS A WEEK
     Route: 048
     Dates: start: 1990, end: 2013

REACTIONS (4)
  - Fall [Unknown]
  - Arthropathy [Recovering/Resolving]
  - Accident [Recovering/Resolving]
  - Hand fracture [Unknown]

NARRATIVE: CASE EVENT DATE: 201312
